FAERS Safety Report 18330371 (Version 3)
Quarter: 2020Q4

REPORT INFORMATION
  Report Type: Spontaneous
  Country: FR (occurrence: FR)
  Receive Date: 20200930
  Receipt Date: 20201111
  Transmission Date: 20210113
  Serious: Yes (Hospitalization, Other)
  Sender: FDA-Public Use
  Company Number: FR-MYLANLABS-2020M1081926

PATIENT
  Age: 82 Year
  Sex: Male

DRUGS (2)
  1. PREDNISONE. [Suspect]
     Active Substance: PREDNISONE
     Indication: MUSCULAR WEAKNESS
     Dosage: 15 MILLIGRAM, QD
     Dates: start: 2016
  2. AZATHIOPRINE. [Suspect]
     Active Substance: AZATHIOPRINE
     Indication: MUSCULAR WEAKNESS
     Dosage: 150 MILLIGRAM, QD
     Dates: start: 2016

REACTIONS (6)
  - Lymphangitis [Recovered/Resolved]
  - Nocardiosis [Recovered/Resolved]
  - Abscess limb [Recovered/Resolved]
  - Subcutaneous abscess [Recovered/Resolved]
  - Secretion discharge [Recovered/Resolved]
  - Cutaneous nocardiosis [Recovered/Resolved]

NARRATIVE: CASE EVENT DATE: 201711
